FAERS Safety Report 6863052-5 (Version None)
Quarter: 2010Q3

REPORT INFORMATION
  Report Type: 
  Country: None (occurrence: None)
  Receive Date: 20100721
  Receipt Date: 20100719
  Transmission Date: 20110219
  Serious: Yes (Other)
  Sender: FDA-Public Use
  Company Number: FR-MERCK-1001FRA00019

PATIENT
  Age: 32 Year
  Sex: Female

DRUGS (4)
  1. PROSCAR [Suspect]
     Route: 048
     Dates: start: 20100108, end: 20100109
  2. NIFEDIPINE [Concomitant]
     Indication: CERVIX ENLARGEMENT
     Route: 048
     Dates: end: 20100107
  3. NIFEDIPINE [Concomitant]
     Route: 048
     Dates: start: 20100110
  4. FERROUS SULFATE [Concomitant]
     Route: 048
     Dates: start: 20091201

REACTIONS (4)
  - DELAYED DELIVERY [None]
  - DRUG DISPENSING ERROR [None]
  - DRUG EXPOSURE DURING PREGNANCY [None]
  - OVERDOSE [None]
